FAERS Safety Report 7307361-4 (Version None)
Quarter: 2011Q1

REPORT INFORMATION
  Report Type: 
  Country: None (occurrence: None)
  Receive Date: 20110223
  Receipt Date: 20110210
  Transmission Date: 20110831
  Serious: Yes (Life-Threatening)
  Sender: FDA-Public Use
  Company Number: JP-PFIZER INC-2011023393

PATIENT
  Age: 41 Year
  Sex: Female

DRUGS (16)
  1. BENAMBAX [Suspect]
     Indication: ANTIFUNGAL PROPHYLAXIS
     Dosage: UNK
     Route: 055
     Dates: start: 20101228
  2. PREDONINE [Concomitant]
     Dosage: 90 MG, 1 D
     Route: 042
     Dates: start: 20101220, end: 20110103
  3. PREDONINE [Concomitant]
     Dosage: 55 MG,  1 D
     Route: 048
     Dates: start: 20110110, end: 20110112
  4. PREDONINE [Concomitant]
     Indication: STILL'S DISEASE ADULT ONSET
     Dosage: 45 MG, 1 D
     Route: 048
     Dates: start: 20101217, end: 20101219
  5. PREDONINE [Concomitant]
     Dosage: 50 MG, 1 D
     Route: 048
     Dates: start: 20110113, end: 20110115
  6. FUNGIZONE [Concomitant]
     Dosage: UNK
     Route: 048
     Dates: start: 20101227
  7. PREDONINE [Concomitant]
     Dosage: 35 MG, 1 D
     Route: 048
     Dates: start: 20110122, end: 20110202
  8. PREDONINE [Concomitant]
     Dosage: 45 MG, 1 D
     Route: 048
     Dates: start: 20110116, end: 20110118
  9. PREDONINE [Concomitant]
     Dosage: 30 MG, 1 D
     Route: 048
     Dates: start: 20110203
  10. LANSOPRAZOLE [Suspect]
     Indication: REFLUX OESOPHAGITIS
     Dosage: 30 MG, UNK
     Route: 048
     Dates: start: 20101224, end: 20110123
  11. LIPITOR [Suspect]
     Indication: HYPERLIPIDAEMIA
     Dosage: 10 MG, 1 IN 1 D
     Route: 048
     Dates: start: 20101228, end: 20110123
  12. ASPIRIN [Suspect]
     Indication: REVERSIBLE ISCHAEMIC NEUROLOGICAL DEFICIT
     Dosage: UNK
     Route: 048
     Dates: start: 20110111, end: 20110123
  13. PREDONINE [Concomitant]
     Dosage: 40 MG, 1 D
     Route: 048
     Dates: start: 20110119, end: 20110121
  14. FOSAMAX [Suspect]
     Indication: OSTEOPOROSIS PROPHYLAXIS
     Dosage: 35 MG, WEEKLY
     Route: 048
     Dates: start: 20101224, end: 20110125
  15. PREDONINE [Concomitant]
     Dosage: 60 MG, 1 D
     Route: 048
     Dates: start: 20110107, end: 20110109
  16. PREDONINE [Concomitant]
     Dosage: 75 MG, 1 D
     Route: 042
     Dates: start: 20110104, end: 20110106

REACTIONS (3)
  - CELLULITIS [None]
  - AGRANULOCYTOSIS [None]
  - SEPSIS [None]
